FAERS Safety Report 5830631-3 (Version None)
Quarter: 2008Q3

REPORT INFORMATION
  Report Type: 
  Country: None (occurrence: None)
  Receive Date: 20080801
  Receipt Date: 20070830
  Transmission Date: 20090109
  Serious: No
  Sender: FDA-Public Use
  Company Number: US-BRISTOL-MYERS SQUIBB COMPANY-13893326

PATIENT
  Sex: Female
  Weight: 72 kg

DRUGS (7)
  1. COUMADIN [Suspect]
     Indication: THROMBOSIS
     Route: 048
     Dates: start: 20070530
  2. DILANTIN [Concomitant]
  3. KEPPRA [Concomitant]
  4. DECADRON [Concomitant]
  5. SYNTHROID [Concomitant]
  6. ZYRTEC [Concomitant]
  7. FLUOXETINE [Concomitant]

REACTIONS (1)
  - SKIN LESION [None]
